FAERS Safety Report 5587277-4 (Version None)
Quarter: 2007Q4

REPORT INFORMATION
  Report Type: 
  Country: None (occurrence: None)
  Receive Date: 20071207
  Receipt Date: 20061104
  Transmission Date: 20080405
  Serious: Yes (Other)
  Sender: FDA-Public Use
  Company Number: 2006136985

PATIENT
  Age: 20 Year
  Sex: Male

DRUGS (2)
  1. VIAGRA [Suspect]
     Dates: start: 20061104
  2. METHYLENEDIOXYMETHAMPHETAMINE (METHYLENEDIOXYMETHAMPHETAMINE) [Concomitant]

REACTIONS (1)
  - ERECTION INCREASED [None]
